FAERS Safety Report 22535010 (Version 1)
Quarter: 2023Q2

REPORT INFORMATION
  Report Type: Report from Study
  Country: US (occurrence: US)
  Receive Date: 20230608
  Receipt Date: 20230608
  Transmission Date: 20230721
  Serious: Yes (Hospitalization)
  Sender: FDA-Public Use
  Company Number: US-HORIZON THERAPEUTICS-HZN-2023-004195

PATIENT

DRUGS (2)
  1. TEPEZZA [Suspect]
     Active Substance: TEPROTUMUMAB-TRBW
     Indication: Endocrine ophthalmopathy
     Dosage: UNK (FIRST INFUSION)
     Route: 042
     Dates: start: 20230426
  2. TEPEZZA [Suspect]
     Active Substance: TEPROTUMUMAB-TRBW
     Dosage: UNK (SECOND INFUSION)
     Route: 042
     Dates: start: 2023

REACTIONS (10)
  - Blood pressure increased [Unknown]
  - Myalgia [Unknown]
  - Agitation [Unknown]
  - Muscle spasms [Unknown]
  - Headache [Unknown]
  - Feeling hot [Unknown]
  - Dyspnoea [Unknown]
  - Infusion site discolouration [Unknown]
  - Infusion site swelling [Unknown]
  - Vascular access complication [Unknown]

NARRATIVE: CASE EVENT DATE: 20230101
